FAERS Safety Report 16676743 (Version 4)
Quarter: 2023Q4

REPORT INFORMATION
  Report Type: Spontaneous
  Country: US (occurrence: None)
  Receive Date: 20190807
  Receipt Date: 20231002
  Transmission Date: 20240110
  Serious: Yes (Death, Hospitalization, Other)
  Sender: FDA-Public Use
  Company Number: 2019SF09627

PATIENT
  Age: 845 Month
  Sex: Female
  Weight: 68.3 kg

DRUGS (41)
  1. NEXIUM [Suspect]
     Active Substance: ESOMEPRAZOLE MAGNESIUM
     Indication: Gastrooesophageal reflux disease
     Route: 048
     Dates: start: 2006, end: 2016
  2. NEXIUM [Suspect]
     Active Substance: ESOMEPRAZOLE MAGNESIUM
     Indication: Gastrooesophageal reflux disease
     Route: 048
     Dates: start: 200603, end: 200609
  3. NEXIUM [Suspect]
     Active Substance: ESOMEPRAZOLE MAGNESIUM
     Indication: Gastrooesophageal reflux disease
     Route: 048
     Dates: start: 201002, end: 201005
  4. NEXIUM [Suspect]
     Active Substance: ESOMEPRAZOLE MAGNESIUM
     Indication: Gastrooesophageal reflux disease
     Route: 048
     Dates: start: 201101, end: 201609
  5. NEXIUM [Suspect]
     Active Substance: ESOMEPRAZOLE MAGNESIUM
     Indication: Gastrooesophageal reflux disease
     Route: 048
     Dates: start: 20150411
  6. POTASSIUM CHLORIDE [Concomitant]
     Active Substance: POTASSIUM CHLORIDE
     Indication: Supplementation therapy
     Dates: start: 200608
  7. GABAPENTIN [Concomitant]
     Active Substance: GABAPENTIN
     Indication: Insomnia
     Dates: start: 201211, end: 201606
  8. CYCLOBENZAPRINE [Concomitant]
     Active Substance: CYCLOBENZAPRINE
     Indication: Muscle spasms
     Dates: start: 200908, end: 200909
  9. TRAZODONE [Concomitant]
     Active Substance: TRAZODONE HYDROCHLORIDE
     Indication: Insomnia
     Dates: start: 201107, end: 201108
  10. PROPYLTHIOURACIL [Concomitant]
     Active Substance: PROPYLTHIOURACIL
     Indication: Thyroid disorder
     Dates: start: 201106, end: 201201
  11. AMLODIPINE [Concomitant]
     Active Substance: AMLODIPINE BESYLATE
     Indication: Blood pressure abnormal
     Dates: start: 201112, end: 201510
  12. HYDRALAZINE [Concomitant]
     Active Substance: HYDRALAZINE HYDROCHLORIDE
     Indication: Diuretic therapy
     Dates: start: 201103, end: 201511
  13. CHLORZOXAZONE [Concomitant]
     Active Substance: CHLORZOXAZONE
     Indication: Muscle spasms
     Dates: start: 201009, end: 201011
  14. LIPITOR [Concomitant]
     Active Substance: ATORVASTATIN CALCIUM
     Indication: Blood cholesterol
     Dates: start: 201112, end: 201409
  15. LOSARTAN [Concomitant]
     Active Substance: LOSARTAN
     Indication: Blood pressure abnormal
     Dates: start: 201204, end: 201507
  16. TRETINOIN [Concomitant]
     Active Substance: TRETINOIN
     Indication: Skin disorder
     Dates: start: 201108, end: 201507
  17. RANITIDINE [Concomitant]
     Active Substance: RANITIDINE
     Dates: start: 201606, end: 201607
  18. ATENOLOL [Concomitant]
     Active Substance: ATENOLOL
  19. PREDNISOLONE [Concomitant]
     Active Substance: PREDNISOLONE
  20. DORZOLAMIDE\TIMOLOL [Concomitant]
     Active Substance: DORZOLAMIDE\TIMOLOL
  21. IBUPROFEN [Concomitant]
     Active Substance: IBUPROFEN
  22. ACETAMINOPHEN\OXYCODONE HYDROCHLORIDE [Concomitant]
     Active Substance: ACETAMINOPHEN\OXYCODONE HYDROCHLORIDE
  23. FERROUS SULFATE [Concomitant]
     Active Substance: FERROUS SULFATE
  24. HYDROXYZINE PAMOATE [Concomitant]
     Active Substance: HYDROXYZINE PAMOATE
  25. CEPHALEXIN [Concomitant]
     Active Substance: CEPHALEXIN
  26. CLOPIDOGREL [Concomitant]
     Active Substance: CLOPIDOGREL BISULFATE
  27. BRIMONIDINE [Concomitant]
     Active Substance: BRIMONIDINE TARTRATE
  28. MECLIZINE [Concomitant]
     Active Substance: MECLIZINE HYDROCHLORIDE
  29. NALOXONE [Concomitant]
     Active Substance: NALOXONE
  30. ZOSTAVAX [Concomitant]
     Active Substance: VARICELLA-ZOSTER VIRUS STRAIN OKA/MERCK LIVE ANTIGEN
  31. ASPIRIN [Concomitant]
     Active Substance: ASPIRIN
  32. VITAMIN D [Concomitant]
     Active Substance: VITAMIN D NOS
  33. MAGNESIUM GLUCONATE [Concomitant]
     Active Substance: MAGNESIUM GLUCONATE
  34. FLUOROURACIL [Concomitant]
     Active Substance: FLUOROURACIL
  35. BISACODYL [Concomitant]
     Active Substance: BISACODYL
  36. SENNA [Concomitant]
     Active Substance: SENNA LEAF\SENNOSIDES\SENNOSIDES A AND B
  37. HEPARIN [Concomitant]
     Active Substance: HEPARIN SODIUM
  38. MIRTAZAPINE [Concomitant]
     Active Substance: MIRTAZAPINE
  39. SODIUM CHLORIDE [Concomitant]
     Active Substance: SODIUM CHLORIDE
  40. DOCUSATE [Concomitant]
     Active Substance: DOCUSATE
  41. MAXITROL [Concomitant]
     Active Substance: DEXAMETHASONE\NEOMYCIN SULFATE\POLYMYXIN B SULFATE

REACTIONS (7)
  - End stage renal disease [Fatal]
  - Acute kidney injury [Unknown]
  - Chronic kidney disease [Unknown]
  - Renal failure [Unknown]
  - Renal tubular necrosis [Unknown]
  - Renal impairment [Unknown]
  - Nephrogenic anaemia [Unknown]

NARRATIVE: CASE EVENT DATE: 20121001
